FAERS Safety Report 11688951 (Version 1)
Quarter: 2015Q4

REPORT INFORMATION
  Report Type: Spontaneous
  Country: US (occurrence: None)
  Receive Date: 20151030
  Receipt Date: 20151030
  Transmission Date: 20160304
  Serious: Yes (Other)
  Sender: FDA-Public Use
  Company Number: None

PATIENT
  Age: 51 Year
  Sex: Female
  Weight: 119.75 kg

DRUGS (12)
  1. TRAZODONE [Concomitant]
     Active Substance: TRAZODONE HYDROCHLORIDE
  2. ALLEGRA [Concomitant]
     Active Substance: FEXOFENADINE HYDROCHLORIDE
  3. VOLTAREN [Concomitant]
     Active Substance: DICLOFENAC SODIUM
  4. ACTIVON ULTRA STRENGTH ARTHRITIS [Suspect]
     Active Substance: HISTAMINE DIHYDROCHLORIDE\MENTHOL
     Indication: ARTHRALGIA
  5. ACTIVON ULTRA STRENGTH ARTHRITIS [Suspect]
     Active Substance: HISTAMINE DIHYDROCHLORIDE\MENTHOL
     Indication: MYALGIA
  6. ACTIVON ULTRA STRENGTH ARTHRITIS [Suspect]
     Active Substance: HISTAMINE DIHYDROCHLORIDE\MENTHOL
     Indication: MUSCLE TIGHTNESS
  7. SYNTHROID [Concomitant]
     Active Substance: LEVOTHYROXINE SODIUM
  8. SYMBICORT [Concomitant]
     Active Substance: BUDESONIDE\FORMOTEROL FUMARATE DIHYDRATE
  9. NIFEDICAL XL [Concomitant]
     Active Substance: NIFEDIPINE
  10. DICLOFENAC [Concomitant]
     Active Substance: DICLOFENAC
  11. IBUPROFEN. [Concomitant]
     Active Substance: IBUPROFEN
  12. LIPITOR [Concomitant]
     Active Substance: ATORVASTATIN CALCIUM

REACTIONS (3)
  - Tension headache [None]
  - Application site burn [None]
  - Application site urticaria [None]

NARRATIVE: CASE EVENT DATE: 20151027
